FAERS Safety Report 6999364-4 (Version None)
Quarter: 2010Q3

REPORT INFORMATION
  Report Type: 
  Country: None (occurrence: None)
  Receive Date: 20100920
  Receipt Date: 20100723
  Transmission Date: 20110219
  Serious: No
  Sender: FDA-Public Use
  Company Number: US-ASTRAZENECA-2010SE34713

PATIENT
  Age: 54 Year
  Sex: Female
  Weight: 52.2 kg

DRUGS (5)
  1. SEROQUEL XR [Suspect]
     Indication: ANXIETY
     Route: 048
     Dates: start: 20100601, end: 20100601
  2. SEROQUEL XR [Suspect]
     Route: 048
     Dates: start: 20100601, end: 20100601
  3. SEROQUEL XR [Suspect]
     Route: 048
     Dates: start: 20100601, end: 20100601
  4. SEROQUEL XR [Suspect]
     Route: 048
     Dates: start: 20100709
  5. SEROQUEL XR [Suspect]
     Route: 048
     Dates: start: 20100722

REACTIONS (4)
  - ANXIETY [None]
  - FATIGUE [None]
  - HANGOVER [None]
  - INSOMNIA [None]
